FAERS Safety Report 15865591 (Version 1)
Quarter: 2019Q1

REPORT INFORMATION
  Report Type: Spontaneous
  Country: DE (occurrence: DE)
  Receive Date: 20190125
  Receipt Date: 20190125
  Transmission Date: 20190417
  Serious: Yes (Hospitalization, Other)
  Sender: FDA-Public Use
  Company Number: DE-AUROBINDO-AUR-APL-2019-002793

PATIENT
  Age: 44 Year
  Sex: Female
  Weight: 58 kg

DRUGS (5)
  1. NORVIR [Suspect]
     Active Substance: RITONAVIR
     Indication: HIV INFECTION
     Dosage: 100 MILLIGRAM, DAILY
     Route: 048
     Dates: start: 20081129
  2. TENOFOVIR DISOPROXIL FILM COATED TABLETS [Suspect]
     Active Substance: TENOFOVIR DISOPROXIL
     Indication: HIV INFECTION
     Dosage: 245 MILLIGRAM, DAILY
     Route: 048
     Dates: start: 20081129
  3. ISENTRESS [Suspect]
     Active Substance: RALTEGRAVIR POTASSIUM
     Indication: HIV INFECTION
     Dosage: 400 MILLIGRAM, DAILY
     Route: 048
     Dates: start: 20081129
  4. TRIZIVIR [Suspect]
     Active Substance: ABACAVIR SULFATE\LAMIVUDINE\ZIDOVUDINE
     Indication: HIV INFECTION
     Dosage: UNK, 300-150-300 MG
     Route: 048
     Dates: start: 20081129
  5. PREZISTA [Suspect]
     Active Substance: DARUNAVIR ETHANOLATE
     Indication: HIV INFECTION
     Dosage: 600 MILLIGRAM, DAILY
     Route: 048
     Dates: start: 20081129

REACTIONS (6)
  - Maternal exposure before pregnancy [Recovered/Resolved]
  - Polyhydramnios [Unknown]
  - Pregnancy [Recovered/Resolved]
  - Premature delivery [Recovered/Resolved]
  - Caesarean section [Unknown]
  - Premature labour [Unknown]

NARRATIVE: CASE EVENT DATE: 20100810
